FAERS Safety Report 7557971-4 (Version None)
Quarter: 2011Q2

REPORT INFORMATION
  Report Type: 
  Country: None (occurrence: None)
  Receive Date: 20110620
  Receipt Date: 20110609
  Transmission Date: 20111010
  Serious: Yes (Hospitalization, Congenital Anomaly, Other)
  Sender: FDA-Public Use
  Company Number: DE-ASTRAZENECA-2011SE35490

PATIENT
  Age: 0 Year
  Sex: Male
  Weight: 2.6 kg

DRUGS (6)
  1. NOVALGIN [Suspect]
     Indication: PAIN
     Route: 064
  2. HUMINSULIN NORMAL 100 [Concomitant]
     Indication: GESTATIONAL DIABETES
     Route: 064
     Dates: end: 20091218
  3. OMEPRAZOLE [Suspect]
     Indication: GASTRIC DISORDER
     Route: 064
  4. FEMIBION [Concomitant]
     Indication: PROPHYLAXIS OF NEURAL TUBE DEFECT
     Route: 064
  5. LYRICA [Suspect]
     Indication: TRIGEMINAL NEURALGIA
     Route: 064
     Dates: start: 20090328, end: 20090612
  6. FLUOXETINE HCL [Suspect]
     Indication: DEPRESSION
     Route: 064
     Dates: start: 20090328, end: 20090612

REACTIONS (5)
  - CYANOSIS NEONATAL [None]
  - CONGENITAL AORTIC VALVE INCOMPETENCE [None]
  - SMALL FOR DATES BABY [None]
  - CONGENITAL AORTIC VALVE STENOSIS [None]
  - ATRIAL SEPTAL DEFECT [None]
